FAERS Safety Report 9915051 (Version 3)
Quarter: 2014Q2

REPORT INFORMATION
  Report Type: Spontaneous
  Country: US (occurrence: US)
  Receive Date: 20140220
  Receipt Date: 20140626
  Transmission Date: 20141212
  Serious: Yes (Death, Hospitalization, Other)
  Sender: FDA-Public Use
  Company Number: US-MERCK-1402USA009835

PATIENT
  Sex: Male
  Weight: 79.37 kg

DRUGS (10)
  1. JANUVIA [Suspect]
     Indication: TYPE 2 DIABETES MELLITUS
     Dosage: 50 MG, QW
     Route: 048
     Dates: start: 20100630, end: 20130408
  2. LANTUS [Concomitant]
     Indication: TYPE 2 DIABETES MELLITUS
     Dosage: 25 IU, UNK
     Route: 058
  3. NOVOLOG [Concomitant]
     Indication: TYPE 2 DIABETES MELLITUS
     Dosage: 5-9 IU, TID
     Route: 058
  4. NEXIUM [Concomitant]
     Dosage: 20 MG, HS
     Route: 048
  5. EFFIENT [Concomitant]
     Indication: CORONARY ARTERY DISEASE
     Dosage: 10 MG, UNK
     Route: 048
  6. GLUCOPHAGE [Concomitant]
     Dosage: 1000 MG, BID
     Route: 048
  7. FERROUS SULFATE [Concomitant]
     Dosage: 325 MG, QOD
     Route: 048
  8. ZYLOPRIM [Concomitant]
     Dosage: 125 MG, UNK
     Route: 048
  9. NIASPAN [Concomitant]
     Dosage: 1500 MG, HS
     Route: 048
  10. IMDUR [Concomitant]
     Dosage: 120 MG, QD
     Route: 048

REACTIONS (25)
  - Adenocarcinoma pancreas [Fatal]
  - Anaemia [Unknown]
  - Acute myocardial infarction [Unknown]
  - Tumour haemorrhage [Unknown]
  - Hepatic cancer metastatic [Unknown]
  - Cerebrovascular accident [Unknown]
  - Encephalopathy [Unknown]
  - Pulmonary oedema [Unknown]
  - Pleural effusion [Unknown]
  - Infection [Unknown]
  - Lymphadenopathy [Unknown]
  - Mental impairment [Unknown]
  - Hypertension [Unknown]
  - Cholelithiasis [Unknown]
  - Pancreatic duct dilatation [Unknown]
  - Gout [Unknown]
  - Gastrooesophageal reflux disease [Unknown]
  - Cardiac murmur [Unknown]
  - Arthritis [Unknown]
  - Hydrocele operation [Unknown]
  - Cough [Not Recovered/Not Resolved]
  - Diverticulum intestinal [Unknown]
  - Pulmonary mass [Unknown]
  - Carotid arteriosclerosis [Unknown]
  - Rash [Unknown]
